FAERS Safety Report 21232385 (Version 2)
Quarter: 2022Q3

REPORT INFORMATION
  Report Type: Spontaneous
  Country: US (occurrence: US)
  Receive Date: 20220819
  Receipt Date: 20220908
  Transmission Date: 20221026
  Serious: Yes (Other)
  Sender: FDA-Public Use
  Company Number: US-PFIZER INC-202101522656

PATIENT
  Age: 86 Year
  Sex: Male
  Weight: 88.45 kg

DRUGS (2)
  1. VYNDAMAX [Suspect]
     Active Substance: TAFAMIDIS
     Indication: Amyloidosis
     Dosage: 61 MG, DAILY
  2. XTANDI [Concomitant]
     Active Substance: ENZALUTAMIDE
     Indication: Prostate cancer
     Dosage: 160 MG, DAILY (4 PILLS A DAY, TOTAL OF 160MG, BY MOUTH, EVERY DAY40MG TABLETS)
     Route: 048
     Dates: start: 2013

REACTIONS (4)
  - Neuropathy peripheral [Unknown]
  - Knee arthroplasty [Unknown]
  - Arteriosclerosis coronary artery [Unknown]
  - Back disorder [Unknown]
